FAERS Safety Report 17278364 (Version 1)
Quarter: 2020Q1

REPORT INFORMATION
  Report Type: Spontaneous
  Country: US (occurrence: US)
  Receive Date: 20191227
  Receipt Date: 20191227
  Transmission Date: 20200409
  Serious: No
  Sender: FDA-Public Use
  Company Number: None

PATIENT
  Age: 67 Year
  Sex: Female

DRUGS (1)
  1. CAPECITABINE++ 500MG TEVA PHARMACEUTICALS USA [Suspect]
     Active Substance: CAPECITABINE
     Indication: NEOPLASM MALIGNANT
     Route: 048
     Dates: start: 20191112

REACTIONS (2)
  - Stomatitis [None]
  - Neuropathy peripheral [None]

NARRATIVE: CASE EVENT DATE: 201912
